FAERS Safety Report 18144753 (Version 3)
Quarter: 2021Q1

REPORT INFORMATION
  Report Type: Spontaneous
  Country: US (occurrence: US)
  Receive Date: 20200813
  Receipt Date: 20210122
  Transmission Date: 20210419
  Serious: Yes (Life-Threatening, Hospitalization, Other)
  Sender: FDA-Public Use
  Company Number: US-PFIZER INC-2020307744

PATIENT
  Age: 44 Year
  Sex: Female
  Weight: 79 kg

DRUGS (11)
  1. BUPROPION. [Suspect]
     Active Substance: BUPROPION
     Indication: DEPRESSION
     Dosage: 75 MG, 1X/DAY
  2. REMIFENTANIL [Concomitant]
     Active Substance: REMIFENTANIL
     Indication: ANAESTHESIA
     Dosage: 0.3 UG/KG, FREQ:1 MIN
  3. PROPOFOL. [Suspect]
     Active Substance: PROPOFOL
     Dosage: 90 UG/KG, FREQ:1 MIN;MOUNTING A CUMULATIVE DOSE OF 700 MG
     Route: 042
  4. ROCURONIUM [Concomitant]
     Active Substance: ROCURONIUM BROMIDE
     Indication: ANAESTHESIA
     Dosage: 10 MG
     Route: 042
  5. DECADRON [Concomitant]
     Active Substance: DEXAMETHASONE
     Indication: NAUSEA
     Dosage: 10 MG
  6. KETOROLAC [Concomitant]
     Active Substance: KETOROLAC TROMETHAMINE
     Indication: PAIN
     Dosage: 30 MG
  7. ONDANSETRON [Suspect]
     Active Substance: ONDANSETRON
     Indication: NAUSEA
     Dosage: 4 MG
  8. ONDANSETRON [Suspect]
     Active Substance: ONDANSETRON
     Dosage: UNK
  9. PROPOFOL. [Suspect]
     Active Substance: PROPOFOL
     Indication: ANAESTHESIA
     Dosage: 150 MG, INDUCTION
     Route: 042
  10. SUCCINYLCHOLINE [SUXAMETHONIUM CHLORIDE] [Concomitant]
     Active Substance: SUCCINYLCHOLINE
     Indication: ANAESTHESIA
     Dosage: 100 MG
     Route: 042
  11. GLYCOPYRROLATE [GLYCOPYRRONIUM] [Concomitant]
     Active Substance: GLYCOPYRRONIUM
     Indication: CARDIAC OUTPUT
     Dosage: 0.2 MG

REACTIONS (1)
  - Dystonia [Recovered/Resolved]
